FAERS Safety Report 9842119 (Version 1)
Quarter: 2014Q1

REPORT INFORMATION
  Report Type: Spontaneous
  Country: FR (occurrence: FR)
  Receive Date: 20140124
  Receipt Date: 20140124
  Transmission Date: 20141002
  Serious: Yes (Disabling)
  Sender: FDA-Public Use
  Company Number: FR-SA-2014SA005975

PATIENT
  Age: 57 Year
  Sex: Male

DRUGS (12)
  1. KARDEGIC [Suspect]
     Indication: ACUTE CORONARY SYNDROME
     Route: 048
     Dates: start: 20130916, end: 20130917
  2. LOVENOX [Suspect]
     Indication: ACUTE CORONARY SYNDROME
     Route: 058
     Dates: start: 20130916, end: 20130917
  3. ACTILYSE [Suspect]
     Indication: ISCHAEMIC STROKE
     Dosage: DAILY DOSE- 7 MG+64 MG
     Route: 042
     Dates: start: 20130917, end: 20130917
  4. RISORDAN [Concomitant]
     Route: 048
     Dates: start: 20130916, end: 20130917
  5. AMLOR [Concomitant]
     Route: 048
     Dates: start: 20130916, end: 20130917
  6. MEDIATENSYL [Concomitant]
     Route: 048
     Dates: start: 20130916, end: 20130917
  7. MORPHINE [Concomitant]
     Indication: BACK PAIN
  8. VASTEN [Concomitant]
  9. MOPRAL [Concomitant]
  10. SECTRAL [Concomitant]
  11. COTAREG [Concomitant]
  12. PSEUDOEPHEDRINE [Concomitant]
     Dosage: INFUSION WITHIN ONE HOUR
     Dates: start: 20130917

REACTIONS (4)
  - Hemiparesis [Recovered/Resolved with Sequelae]
  - Spinal cord compression [Recovered/Resolved with Sequelae]
  - Quadriplegia [Not Recovered/Not Resolved]
  - Spinal epidural haematoma [Recovered/Resolved with Sequelae]
